FAERS Safety Report 6558239-5 (Version None)
Quarter: 2010Q1

REPORT INFORMATION
  Report Type: 
  Country: None (occurrence: None)
  Receive Date: 20100129
  Receipt Date: 20100123
  Transmission Date: 20100710
  Serious: Yes (Other)
  Sender: FDA-Public Use
  Company Number: DE-BRISTOL-MYERS SQUIBB COMPANY-14947113

PATIENT
  Age: 61 Year
  Sex: Female

DRUGS (1)
  1. ABILIFY [Suspect]
     Indication: SCHIZOPHRENIA
     Dosage: FIRST 5MG, THEN DOSE INCREASED TO 15MG.
     Dates: start: 20071101

REACTIONS (3)
  - EPILEPSY [None]
  - MENINGIOMA [None]
  - PSYCHOMOTOR SKILLS IMPAIRED [None]
